FAERS Safety Report 6701539-6 (Version None)
Quarter: 2010Q2

REPORT INFORMATION
  Report Type: 
  Country: None (occurrence: None)
  Receive Date: 20100429
  Receipt Date: 20100420
  Transmission Date: 20101027
  Serious: Yes (Other)
  Sender: FDA-Public Use
  Company Number: US-JNJFOC-20100405806

PATIENT
  Age: 41 Year
  Sex: Female
  Weight: 113.4 kg

DRUGS (3)
  1. IMODIUM A-D [Suspect]
     Route: 048
  2. IMODIUM A-D [Suspect]
     Indication: DIARRHOEA
     Dosage: 2 CAPLETS ONCE
     Route: 048
  3. HERBAL/NUTRITIONAL SUPPLEMENTS [Interacting]
     Indication: WEIGHT DECREASED
     Route: 065

REACTIONS (7)
  - ANTISOCIAL BEHAVIOUR [None]
  - ANXIETY [None]
  - DISORIENTATION [None]
  - DIZZINESS [None]
  - DRUG INTERACTION [None]
  - EUPHORIC MOOD [None]
  - SOMNOLENCE [None]
